FAERS Safety Report 19634585 (Version 1)
Quarter: 2021Q3

REPORT INFORMATION
  Report Type: Report from Study
  Country: MX (occurrence: MX)
  Receive Date: 20210730
  Receipt Date: 20210730
  Transmission Date: 20211014
  Serious: Yes (Other)
  Sender: FDA-Public Use
  Company Number: MX-AMGEN-MEXSL2021114380

PATIENT
  Age: 54 Year
  Sex: Male

DRUGS (1)
  1. BLINCYTO [Suspect]
     Active Substance: BLINATUMOMAB
     Indication: B PRECURSOR TYPE ACUTE LEUKAEMIA
     Dosage: 28 MICROGRAM, QD
     Route: 065

REACTIONS (6)
  - Feeding disorder [Unknown]
  - Salivary hypersecretion [Unknown]
  - Choking sensation [Unknown]
  - Hypoaesthesia [Unknown]
  - Disorientation [Unknown]
  - Pyrexia [Unknown]

NARRATIVE: CASE EVENT DATE: 20210721
